FAERS Safety Report 6334520-X (Version None)
Quarter: 2009Q3

REPORT INFORMATION
  Report Type: 
  Country: None (occurrence: None)
  Receive Date: 20090831
  Receipt Date: 20090731
  Transmission Date: 20100115
  Serious: No
  Sender: FDA-Public Use
  Company Number: US-BAYER-200924483NA

PATIENT
  Age: 66 Year
  Sex: Female

DRUGS (1)
  1. ANGELIQ [Suspect]
     Indication: ARTHRITIS
     Route: 048
     Dates: start: 20090501

REACTIONS (3)
  - CYSTITIS [None]
  - FUNGAL INFECTION [None]
  - VULVOVAGINAL PRURITUS [None]
